FAERS Safety Report 6631686-9 (Version None)
Quarter: 2010Q1

REPORT INFORMATION
  Report Type: 
  Country: None (occurrence: None)
  Receive Date: 20100312
  Receipt Date: 20100303
  Transmission Date: 20100710
  Serious: Yes (Other)
  Sender: FDA-Public Use
  Company Number: SE-PFIZER INC-2010027954

PATIENT
  Sex: Female

DRUGS (2)
  1. PROVERA [Suspect]
     Indication: MENSTRUAL CYCLE MANAGEMENT
     Dosage: 10 MG, UNK
     Route: 048
     Dates: start: 20090101
  2. PERGOTIME [Suspect]
     Indication: OVULATION INDUCTION
     Dosage: 50 MG, CYCLIC
     Route: 048

REACTIONS (3)
  - MYOPIA [None]
  - VISION BLURRED [None]
  - VISUAL ACUITY REDUCED [None]
